FAERS Safety Report 7830488-5 (Version None)
Quarter: 2011Q4

REPORT INFORMATION
  Report Type: 
  Country: None (occurrence: None)
  Receive Date: 20111021
  Receipt Date: 20111011
  Transmission Date: 20120403
  Serious: Yes (Hospitalization, Other)
  Sender: FDA-Public Use
  Company Number: US-JNJFOC-20111005102

PATIENT

DRUGS (14)
  1. POTASSIUM [Concomitant]
     Route: 065
  2. REMICADE [Suspect]
     Indication: MATERNAL EXPOSURE DURING PREGNANCY
     Route: 064
  3. DEXILANT [Concomitant]
     Route: 065
  4. TOPAMAX [Concomitant]
     Dosage: 200
     Route: 065
  5. VITAMIN AND MINERAL PRENATAL SUPPLEMENT W/ FOLIC ACID CAP [Concomitant]
     Route: 065
  6. PROMETHAZINE [Concomitant]
     Dosage: 25
     Route: 065
  7. MAGNESIUM GLUCONATE [Concomitant]
     Route: 065
  8. XANAX [Concomitant]
     Route: 065
  9. VITAMIN D [Concomitant]
     Route: 065
  10. DOMPERIDONE [Concomitant]
     Route: 065
  11. IRON [Concomitant]
     Route: 065
  12. SYNTHROID [Concomitant]
     Dosage: 250 MCG
     Route: 065
  13. CLONAZEPAM [Concomitant]
     Route: 065
  14. PREDNISONE [Concomitant]
     Route: 065

REACTIONS (1)
  - PREMATURE BABY [None]
